FAERS Safety Report 20816598 (Version 1)
Quarter: 2022Q2

REPORT INFORMATION
  Report Type: Spontaneous
  Country: CA (occurrence: CA)
  Receive Date: 20220512
  Receipt Date: 20220512
  Transmission Date: 20220721
  Serious: Yes (Other)
  Sender: FDA-Public Use
  Company Number: CA-SAMSUNG BIOEPIS-SB-2022-11013

PATIENT
  Age: 54 Year
  Sex: Female
  Weight: 69 kg

DRUGS (1)
  1. INFLIXIMAB [Suspect]
     Active Substance: INFLIXIMAB
     Indication: Ankylosing spondylitis
     Route: 042

REACTIONS (7)
  - Fatigue [Recovered/Resolved]
  - Feeling abnormal [Not Recovered/Not Resolved]
  - Headache [Recovered/Resolved]
  - Heart rate decreased [Not Recovered/Not Resolved]
  - Postoperative wound infection [Not Recovered/Not Resolved]
  - Pruritus [Not Recovered/Not Resolved]
  - Skin cancer [Not Recovered/Not Resolved]
